FAERS Safety Report 5473205-9 (Version None)
Quarter: 2007Q4

REPORT INFORMATION
  Report Type: 
  Country: None (occurrence: None)
  Receive Date: 20071001
  Receipt Date: 20070921
  Transmission Date: 20080405
  Serious: Yes (Hospitalization)
  Sender: FDA-Public Use
  Company Number: TH-ASTRAZENECA-2007AP05956

PATIENT
  Age: 72 Year
  Sex: Female

DRUGS (6)
  1. CRESTOR [Suspect]
     Indication: HYPERLIPIDAEMIA
     Dosage: TABLET TAKEN BEFORE BED
     Route: 048
     Dates: start: 20070914, end: 20070917
  2. CARDIPRIN [Concomitant]
     Route: 048
     Dates: end: 20070927
  3. IMDUR [Concomitant]
     Route: 048
  4. ISORDIL [Concomitant]
     Route: 048
  5. FBC [Concomitant]
     Route: 048
  6. SIMVASTATIN [Concomitant]

REACTIONS (2)
  - DERMATITIS BULLOUS [None]
  - STEVENS-JOHNSON SYNDROME [None]
